FAERS Safety Report 5332644-7 (Version None)
Quarter: 2007Q2

REPORT INFORMATION
  Report Type: 
  Country: None (occurrence: None)
  Receive Date: 20070523
  Receipt Date: 20070515
  Transmission Date: 20071010
  Serious: Yes (Hospitalization)
  Sender: FDA-Public Use
  Company Number: DE-PFIZER INC-2007039714

PATIENT
  Sex: Female

DRUGS (9)
  1. REVATIO [Suspect]
     Indication: PULMONARY HYPERTENSION
     Route: 048
  2. LITHIUM CARBONATE [Concomitant]
  3. CIPRALEX [Concomitant]
  4. ABILIFY [Concomitant]
  5. SPIRINOLACTON [Concomitant]
  6. ALLOPURINOL [Concomitant]
  7. MARCUMAR [Concomitant]
  8. L-THYROXIN [Concomitant]
  9. TORSEMIDE [Concomitant]

REACTIONS (1)
  - MUSCLE TWITCHING [None]
